FAERS Safety Report 8173946-9 (Version None)
Quarter: 2012Q1

REPORT INFORMATION
  Report Type: 
  Country: None (occurrence: None)
  Receive Date: 20120229
  Receipt Date: 20120223
  Transmission Date: 20120608
  Serious: Yes (Hospitalization)
  Sender: FDA-Public Use
  Company Number: IT-PFIZER INC-2012050504

PATIENT
  Age: 61 Year
  Sex: Male

DRUGS (5)
  1. XELODA [Concomitant]
     Route: 048
  2. AREDIA [Suspect]
     Indication: METASTASES TO BONE
     Dosage: 90 MG, MONTHLY
     Route: 042
     Dates: start: 20081013, end: 20081127
  3. ZOMETA [Suspect]
     Indication: METASTASES TO BONE
     Dosage: 4 MG, MONTHLY
     Route: 042
     Dates: start: 20080530, end: 20080801
  4. SUTENT [Suspect]
     Indication: RENAL CELL CARCINOMA
     Dosage: 50 MG, 1X/DAY
     Route: 048
     Dates: start: 20080129, end: 20090717
  5. PREDNISONE TAB [Concomitant]

REACTIONS (1)
  - OSTEONECROSIS OF JAW [None]
